FAERS Safety Report 5325763-2 (Version None)
Quarter: 2007Q2

REPORT INFORMATION
  Report Type: 
  Country: None (occurrence: None)
  Receive Date: 20070509
  Receipt Date: 20070430
  Transmission Date: 20071010
  Serious: Yes (Hospitalization)
  Sender: FDA-Public Use
  Company Number: 233441K07USA

PATIENT
  Age: 44 Year
  Sex: Female

DRUGS (2)
  1. REBIF [Suspect]
     Indication: MULTIPLE SCLEROSIS
     Dosage: 44 MCG, 3 IN 1 WEEKS, SUBCUTANEOUS
     Route: 058
     Dates: start: 20060707
  2. SOLU-MEDROL [Suspect]
     Dosage: INTRAVENOUS (NOT OTHERWISE SPECIFIED)
     Route: 042
     Dates: start: 20070301, end: 20070301

REACTIONS (6)
  - COUGH [None]
  - DYSPNOEA [None]
  - HYPERGLYCAEMIA [None]
  - MULTIPLE SCLEROSIS RELAPSE [None]
  - UPPER RESPIRATORY TRACT INFECTION [None]
  - WHEEZING [None]
